FAERS Safety Report 8455826-4 (Version None)
Quarter: 2012Q2

REPORT INFORMATION
  Report Type: 
  Country: None (occurrence: None)
  Receive Date: 20120621
  Receipt Date: 20120611
  Transmission Date: 20120825
  Serious: Yes (Hospitalization)
  Sender: FDA-Public Use
  Company Number: BE-ABBOTT-12P-013-0944836-02

PATIENT
  Sex: Female

DRUGS (10)
  1. NEXIUM [Concomitant]
     Indication: OESOPHAGITIS
     Dates: start: 19970101
  2. LEVOTHYROXINE SODIUM [Concomitant]
     Indication: HYPOTHYROIDISM
     Dates: start: 20050831, end: 20100426
  3. FERROGRADUMET [Concomitant]
     Indication: IRON DEFICIENCY
     Dates: start: 20090101
  4. HUMIRA [Suspect]
     Indication: CROHN'S DISEASE
     Route: 058
     Dates: start: 20080414, end: 20080414
  5. FERROGRADUMET [Concomitant]
     Indication: PROPHYLAXIS
  6. D-CURE [Concomitant]
     Indication: OSTEOPOROSIS
     Dates: start: 20071211
  7. XANAX [Concomitant]
     Indication: ANXIETY
     Dates: start: 20071110
  8. LEVOTHYROXINE SODIUM [Concomitant]
     Dates: start: 20111019
  9. LORAZEPAM [Concomitant]
     Indication: ANXIETY
     Dates: start: 20071122
  10. CALCIUM CARBONATE [Concomitant]
     Indication: OSTEOPOROSIS
     Dates: start: 20071211

REACTIONS (1)
  - THYROID CANCER [None]
